FAERS Safety Report 19975550 (Version 1)
Quarter: 2021Q4

REPORT INFORMATION
  Report Type: Spontaneous
  Country: US (occurrence: US)
  Receive Date: 20211020
  Receipt Date: 20211020
  Transmission Date: 20220303
  Serious: No
  Sender: FDA-Public Use
  Company Number: US-ALLERGAN-2103176US

PATIENT
  Sex: Female

DRUGS (1)
  1. LINZESS [Suspect]
     Active Substance: LINACLOTIDE
     Indication: Functional gastrointestinal disorder
     Dosage: 75 MG, QD
     Route: 048
     Dates: start: 20210111

REACTIONS (1)
  - Off label use [Unknown]
